FAERS Safety Report 4769947-0 (Version None)
Quarter: 2005Q3

REPORT INFORMATION
  Report Type: 
  Country: None (occurrence: None)
  Receive Date: 20050914
  Receipt Date: 20050912
  Transmission Date: 20060218
  Serious: Yes (Death, Hospitalization)
  Sender: FDA-Public Use
  Company Number: TCI2005A01369

PATIENT
  Age: 45 Year
  Sex: Female

DRUGS (7)
  1. ACTOS [Suspect]
     Indication: DIABETES MELLITUS
     Dosage: 15 MG (15 MG, 1 IN 1 D), PER ORAL
     Route: 048
     Dates: start: 20041225, end: 20050222
  2. AMARYL [Concomitant]
  3. LASIX [Concomitant]
  4. FERROMIA (FERROUS CITRATE) [Concomitant]
  5. CAPTOPRIL [Concomitant]
  6. WARFARIN SODIUM [Concomitant]
  7. ENALAPRIL MALEATE [Concomitant]

REACTIONS (10)
  - ARTHRITIS [None]
  - CARDIAC FAILURE [None]
  - DISEASE PROGRESSION [None]
  - INTERSTITIAL LUNG DISEASE [None]
  - OEDEMA PERIPHERAL [None]
  - PAIN [None]
  - PAIN IN EXTREMITY [None]
  - PERIPHERAL VASCULAR DISORDER [None]
  - PNEUMONIA [None]
  - SCLERODERMA [None]
